FAERS Safety Report 9459620 (Version 1)
Quarter: 2013Q3

REPORT INFORMATION
  Report Type: Spontaneous
  Country: US (occurrence: US)
  Receive Date: 20130815
  Receipt Date: 20130815
  Transmission Date: 20140515
  Serious: No
  Sender: FDA-Public Use
  Company Number: US-COVIDIEN/TYCO HEALTHCARE/MALLINCKRODT-T201303591

PATIENT
  Age: 54 Year
  Sex: Female
  Weight: 90.7 kg

DRUGS (10)
  1. FENTANYL TRANSDERMAL SYSTEM [Suspect]
     Indication: SPINAL PAIN
     Dosage: 50 UG/HR, Q 72 HRS
     Route: 062
  2. FENTANYL TRANSDERMAL SYSTEM [Suspect]
     Indication: SYSTEMIC LUPUS ERYTHEMATOSUS
  3. NORCO [Concomitant]
     Indication: BREAKTHROUGH PAIN
     Dosage: 10/325MG, Q 4 TO 6 H PRN
     Route: 048
  4. NEURONTIN [Concomitant]
     Indication: PRODUCT USED FOR UNKNOWN INDICATION
     Dosage: 300 MG, TID
     Route: 048
  5. LISINOPRIL [Concomitant]
     Indication: BLOOD PRESSURE
     Dosage: 40 MG, QD
     Route: 048
  6. SYNTHROID [Concomitant]
     Indication: PRODUCT USED FOR UNKNOWN INDICATION
     Dosage: 0.88 MCG, QD
     Route: 048
  7. ESTRADIOL [Concomitant]
     Indication: PRODUCT USED FOR UNKNOWN INDICATION
     Dosage: 6 MG, QD
     Route: 048
  8. SYMBICORT [Concomitant]
     Indication: ASTHMA
     Dosage: INHALER, BID
  9. ALBUTEROL                          /00139501/ [Concomitant]
     Indication: ASTHMA
     Dosage: INHALER, PRN
  10. COMBIVENT [Concomitant]
     Indication: ASTHMA
     Dosage: INHALER, PRN

REACTIONS (6)
  - Abdominal pain upper [Not Recovered/Not Resolved]
  - Pain in extremity [Not Recovered/Not Resolved]
  - Back pain [Not Recovered/Not Resolved]
  - Nausea [Not Recovered/Not Resolved]
  - Headache [Not Recovered/Not Resolved]
  - Product adhesion issue [Unknown]
